FAERS Safety Report 6455538-2 (Version None)
Quarter: 2009Q4

REPORT INFORMATION
  Report Type: 
  Country: None (occurrence: None)
  Receive Date: 20091125
  Receipt Date: 20091123
  Transmission Date: 20100525
  Serious: Yes (Death, Hospitalization)
  Sender: FDA-Public Use
  Company Number: BR-ABBOTT-05P-020-0320598-00

PATIENT
  Sex: Male

DRUGS (1)
  1. KALETRA [Suspect]
     Indication: ANTIRETROVIRAL THERAPY
     Route: 048

REACTIONS (4)
  - DIARRHOEA [None]
  - HEPATIC NEOPLASM MALIGNANT [None]
  - HEPATITIS [None]
  - PYREXIA [None]
